FAERS Safety Report 25542017 (Version 4)
Quarter: 2025Q3

REPORT INFORMATION
  Report Type: Spontaneous
  Country: JP (occurrence: JP)
  Receive Date: 20250711
  Receipt Date: 20250827
  Transmission Date: 20251021
  Serious: Yes (Hospitalization, Other)
  Sender: TAKEDA
  Company Number: JP-TAKEDA-2025TJP006904

PATIENT
  Age: 84 Year
  Sex: Female
  Weight: 37 kg

DRUGS (5)
  1. FRUZAQLA [Suspect]
     Active Substance: FRUQUINTINIB
     Indication: Colon cancer
     Dosage: 5 MILLIGRAM, QD
     Dates: start: 20250603, end: 20250603
  2. FRUZAQLA [Suspect]
     Active Substance: FRUQUINTINIB
  3. FRUZAQLA [Suspect]
     Active Substance: FRUQUINTINIB
  4. PITAVASTATIN CALCIUM [Concomitant]
     Active Substance: PITAVASTATIN CALCIUM
  5. CELECOXIB [Concomitant]
     Active Substance: CELECOXIB

REACTIONS (4)
  - Delirium [Recovered/Resolved]
  - Posterior reversible encephalopathy syndrome [Recovered/Resolved]
  - Hypertension [Recovered/Resolved]
  - Diarrhoea [Unknown]

NARRATIVE: CASE EVENT DATE: 20250605
